FAERS Safety Report 8760015 (Version 1)
Quarter: 2012Q4

REPORT INFORMATION
  Report Type: Report from Study
  Country: US (occurrence: US)
  Receive Date: 20120829
  Receipt Date: 20120829
  Transmission Date: 20130627
  Serious: Yes (Other)
  Sender: FDA-Public Use
  Company Number: US-ROCHE-1106902

PATIENT
  Age: 85 Year
  Sex: Female

DRUGS (8)
  1. RANIBIZUMAB [Suspect]
     Indication: AGE-RELATED MACULAR DEGENERATION
     Route: 050
     Dates: start: 20120313
  2. FOLIC ACID [Concomitant]
  3. GLUCOPHAGE XR [Concomitant]
     Route: 048
  4. ISTALOL [Concomitant]
     Dosage: Bilateral eyes daily
  5. AZOPT [Concomitant]
     Dosage: right eye daily
  6. TOPROL XL [Concomitant]
     Route: 048
  7. ALDACTAZIDE [Concomitant]
     Dosage: 25mg/25mg
     Route: 048
  8. PRESERVISION LUTEIN [Concomitant]
     Dosage: bilateral

REACTIONS (1)
  - Hypotension [Unknown]
